FAERS Safety Report 20143924 (Version 1)
Quarter: 2021Q4

REPORT INFORMATION
  Report Type: Other
  Country: JP (occurrence: None)
  Receive Date: 20211203
  Receipt Date: 20211203
  Transmission Date: 20220304
  Serious: Yes (Other)
  Sender: FDA-Public Use
  Company Number: JP-ROCHE-2963554

PATIENT

DRUGS (2)
  1. BEVACIZUMAB [Suspect]
     Active Substance: BEVACIZUMAB
     Indication: Hepatocellular carcinoma
     Route: 042
  2. ATEZOLIZUMAB [Suspect]
     Active Substance: ATEZOLIZUMAB
     Indication: Hepatocellular carcinoma
     Route: 041

REACTIONS (10)
  - Colitis [Unknown]
  - Hepatic failure [Unknown]
  - Haemobilia [Unknown]
  - Decreased appetite [Unknown]
  - Protein urine present [Unknown]
  - Fatigue [Unknown]
  - Hypertension [Unknown]
  - Pyrexia [Unknown]
  - Hyperthyroidism [Unknown]
  - Hepatic function abnormal [Unknown]
